FAERS Safety Report 10777807 (Version 2)
Quarter: 2016Q2

REPORT INFORMATION
  Report Type: Spontaneous
  Country: FR (occurrence: FR)
  Receive Date: 20150209
  Receipt Date: 20160622
  Transmission Date: 20160815
  Serious: Yes (Other)
  Sender: FDA-Public Use
  Company Number: FR-SA-2015SA013948

PATIENT
  Age: 69 Year
  Sex: Female
  Weight: 67.9 kg

DRUGS (5)
  1. ZYPREXA [Suspect]
     Active Substance: OLANZAPINE
     Dosage: USUAL TREATMENT
     Route: 065
  2. ZYPREXA [Suspect]
     Active Substance: OLANZAPINE
     Dosage: USUAL TREATMENT
     Route: 065
  3. DEPAKOTE [Suspect]
     Active Substance: DIVALPROEX SODIUM
     Dosage: USUAL TREATMENT?DOSE: 0.25 MG MORNING + 0.25 EVENING
     Route: 065
  4. ALPRAZOLAM. [Suspect]
     Active Substance: ALPRAZOLAM
     Dosage: USUAL TREATMENT
     Route: 065
     Dates: end: 201501
  5. ZOLPIDEM [Suspect]
     Active Substance: ZOLPIDEM\ZOLPIDEM TARTRATE
     Dosage: USUAL TREATMENT
     Route: 065

REACTIONS (2)
  - Cogwheel rigidity [Recovered/Resolved]
  - Parkinsonism [Not Recovered/Not Resolved]

NARRATIVE: CASE EVENT DATE: 201411
